FAERS Safety Report 5621227-7 (Version None)
Quarter: 2008Q1

REPORT INFORMATION
  Report Type: 
  Country: None (occurrence: None)
  Receive Date: 20080114
  Receipt Date: 20070220
  Transmission Date: 20080703
  Serious: Yes (Hospitalization)
  Sender: FDA-Public Use
  Company Number: A03200701495

PATIENT
  Age: 72 Year
  Sex: Male
  Weight: 92.97 kg

DRUGS (8)
  1. PLAVIX [Suspect]
     Indication: ANGIOPLASTY
     Dosage: 75 MG QD-ORAL
     Route: 048
     Dates: start: 20070208, end: 20070214
  2. PLAVIX [Suspect]
     Indication: CORONARY ARTERIAL STENT INSERTION
     Dosage: 75 MG QD-ORAL
     Route: 048
     Dates: start: 20070208, end: 20070214
  3. ASPIRIN [Suspect]
     Dosage: 81 MG QD-ORAL
     Route: 048
     Dates: start: 20070212
  4. EZETIMIBE/SIMVASTATIN [Concomitant]
  5. COLCHICINE [Concomitant]
  6. DUTASTERIDE [Concomitant]
  7. SOTALOL HYDROCHLORIDE [Concomitant]
  8. ROSIGLITAZONE MALEATE [Concomitant]

REACTIONS (2)
  - HAEMORRHAGE URINARY TRACT [None]
  - PAIN [None]
